FAERS Safety Report 25920148 (Version 1)
Quarter: 2025Q4

REPORT INFORMATION
  Report Type: Spontaneous
  Country: US (occurrence: None)
  Receive Date: 20251014
  Receipt Date: 20251014
  Transmission Date: 20260119
  Serious: Yes (Other)
  Sender: FDA-CTU
  Company Number: None

PATIENT
  Sex: Male

DRUGS (2)
  1. IMATINIB MESYLATE [Suspect]
     Active Substance: IMATINIB MESYLATE
     Indication: Gastrointestinal stromal tumour
     Dosage: TAKE 2 TABLETS (200 MG) BY MOUTH ONCE DAILY
     Route: 048
     Dates: start: 20200721
  2. IMATINIB MESYLATE [Suspect]
     Active Substance: IMATINIB MESYLATE
     Indication: Gastric neoplasm

REACTIONS (3)
  - Muscle spasms [None]
  - Therapy interrupted [None]
  - Surgery [None]
